FAERS Safety Report 7385271-4 (Version None)
Quarter: 2011Q1

REPORT INFORMATION
  Report Type: 
  Country: None (occurrence: None)
  Receive Date: 20110330
  Receipt Date: 20100223
  Transmission Date: 20110831
  Serious: No
  Sender: FDA-Public Use
  Company Number: US-MYLANLABS-2010S1003240

PATIENT
  Sex: Female

DRUGS (1)
  1. EMSAM [Suspect]
     Route: 062
     Dates: start: 20100101, end: 20100218

REACTIONS (4)
  - DRY THROAT [None]
  - PARAESTHESIA [None]
  - DRY EYE [None]
  - HYPOAESTHESIA [None]
